FAERS Safety Report 21352391 (Version 2)
Quarter: 2025Q2

REPORT INFORMATION
  Report Type: Spontaneous
  Country: ES (occurrence: ES)
  Receive Date: 20220920
  Receipt Date: 20250610
  Transmission Date: 20250716
  Serious: Yes (Other)
  Sender: AUROBINDO
  Company Number: ES-002147023-NVSC2022ES199662

PATIENT
  Age: 57 Year
  Sex: Male

DRUGS (2)
  1. PEMETREXED [Suspect]
     Active Substance: PEMETREXED
     Indication: Lung adenocarcinoma stage IV
     Route: 065
  2. CISPLATIN [Suspect]
     Active Substance: CISPLATIN
     Indication: Lung adenocarcinoma stage IV
     Route: 065

REACTIONS (5)
  - Ataxia [Unknown]
  - Condition aggravated [Unknown]
  - Dysarthria [Unknown]
  - Paraneoplastic syndrome [Unknown]
  - Somnolence [Unknown]
